FAERS Safety Report 24913858 (Version 1)
Quarter: 2025Q1

REPORT INFORMATION
  Report Type: Spontaneous
  Country: CA (occurrence: CA)
  Receive Date: 20250202
  Receipt Date: 20250202
  Transmission Date: 20250409
  Serious: Yes (Other)
  Sender: ALEXION PHARMACEUTICALS
  Company Number: CA-AstraZeneca-2024A064167

PATIENT

DRUGS (1)
  1. KOSELUGO [Suspect]
     Active Substance: SELUMETINIB
     Indication: Neurofibromatosis
     Dosage: 25 MILLIGRAM, BID

REACTIONS (3)
  - Drug ineffective [Unknown]
  - Weight increased [Unknown]
  - Self-consciousness [Unknown]
